FAERS Safety Report 7273779-1 (Version None)
Quarter: 2011Q1

REPORT INFORMATION
  Report Type: 
  Country: None (occurrence: None)
  Receive Date: 20110203
  Receipt Date: 20110202
  Transmission Date: 20110831
  Serious: Yes (Hospitalization)
  Sender: FDA-Public Use
  Company Number: IT-PFIZER INC-2011016009

PATIENT
  Age: 59 Year
  Sex: Male

DRUGS (8)
  1. SUTENT [Suspect]
     Indication: RENAL CANCER
     Dosage: 37.5 MG, 1X/DAY
     Route: 048
     Dates: start: 20100414, end: 20100723
  2. ACETYLSALICYLIC ACID [Concomitant]
     Route: 048
  3. TORVAST [Concomitant]
     Dosage: 1 DOSAGE UNIT
     Route: 048
  4. TRIATEC [Concomitant]
     Dosage: 1 DOSAGE UNIT
     Route: 048
  5. CARDICOR [Concomitant]
     Dosage: 1 DOSAGE UNIT
     Route: 048
  6. GLYCERYL TRINITRATE [Concomitant]
     Dosage: 10 MG/24 H, 1 PATCH
     Route: 062
  7. ANTRA [Concomitant]
     Dosage: 1 DOSAGE UNIT
     Route: 048
  8. TACHIDOL [Concomitant]

REACTIONS (2)
  - EJECTION FRACTION DECREASED [None]
  - INTRACARDIAC THROMBUS [None]
